FAERS Safety Report 5308042-9 (Version None)
Quarter: 2007Q1

REPORT INFORMATION
  Report Type: 
  Country: None (occurrence: None)
  Receive Date: 20070201
  Receipt Date: 20061129
  Transmission Date: 20070707
  Serious: Yes (Hospitalization)
  Sender: FDA-Public Use
  Company Number: 2006PV025856

PATIENT
  Age: 54 Year
  Sex: Male

DRUGS (8)
  1. BYETTA [Suspect]
     Indication: DIABETES MELLITUS NON-INSULIN-DEPENDENT
     Dosage: SC
     Route: 058
     Dates: start: 20060301, end: 20061001
  2. METFORMIN HCL [Concomitant]
  3. ACTOS [Concomitant]
  4. ASPIRIN [Concomitant]
  5. GEMFIBROZIL [Concomitant]
  6. LIPITOR [Concomitant]
  7. PAROXETINE [Concomitant]
  8. LISINOPRIL [Concomitant]

REACTIONS (2)
  - DYSPNOEA [None]
  - PANCREATITIS [None]
